FAERS Safety Report 4815762-9 (Version None)
Quarter: 2005Q4

REPORT INFORMATION
  Report Type: 
  Country: None (occurrence: None)
  Receive Date: 20051027
  Receipt Date: 20051020
  Transmission Date: 20060501
  Serious: Yes (Death, Hospitalization, Other)
  Sender: FDA-Public Use
  Company Number: 141918USA

PATIENT
  Age: 57 Year
  Sex: Female
  Weight: 47.6277 kg

DRUGS (6)
  1. COPAXONE [Suspect]
     Indication: MULTIPLE SCLEROSIS
     Dosage: 20 MILLIGRAM QD SUBCUTANEOUS
     Route: 058
     Dates: start: 20020103, end: 20050418
  2. AMANTADINE HCL [Concomitant]
  3. ESTRADERM [Concomitant]
  4. NEURONTIN [Concomitant]
  5. PRAVACHOL [Concomitant]
  6. QUININE [Concomitant]

REACTIONS (3)
  - ACUTE PROMYELOCYTIC LEUKAEMIA [None]
  - DYSPNOEA [None]
  - OEDEMA PERIPHERAL [None]
